FAERS Safety Report 6503736-1 (Version None)
Quarter: 2009Q4

REPORT INFORMATION
  Report Type: 
  Country: None (occurrence: None)
  Receive Date: 20091217
  Receipt Date: 20091209
  Transmission Date: 20100525
  Serious: Yes (Death)
  Sender: FDA-Public Use
  Company Number: US-ROCHE-673835

PATIENT
  Sex: Female

DRUGS (1)
  1. XELODA [Suspect]
     Indication: DRUG USE FOR UNKNOWN INDICATION
     Dosage: 1000 MG IN EVERY MORNING AND 1500 MG EVERY EVENING FOR 14 DAYS OF EVERY 21 DAYS CYCLE.
     Route: 065

REACTIONS (1)
  - DEATH [None]
